APPROVED DRUG PRODUCT: SLO-BID
Active Ingredient: THEOPHYLLINE
Strength: 300MG
Dosage Form/Route: CAPSULE, EXTENDED RELEASE;ORAL
Application: A087894 | Product #001
Applicant: SANOFI AVENTIS US LLC
Approved: Jan 31, 1985 | RLD: No | RS: No | Type: DISCN